FAERS Safety Report 7622546-5 (Version None)
Quarter: 2011Q3

REPORT INFORMATION
  Report Type: 
  Country: None (occurrence: None)
  Receive Date: 20110719
  Receipt Date: 20110719
  Transmission Date: 20111222
  Serious: Yes (Hospitalization)
  Sender: FDA-Public Use
  Company Number: None

PATIENT
  Age: 84 Year
  Sex: Male
  Weight: 85.5 kg

DRUGS (1)
  1. BACTRIM DS [Suspect]
     Indication: URINARY TRACT INFECTION
     Dosage: BACTRIM DS TAB BID PO
     Route: 048
     Dates: start: 20110613, end: 20110616

REACTIONS (6)
  - CULTURE URINE POSITIVE [None]
  - DRUG ERUPTION [None]
  - WHITE BLOOD CELLS URINE POSITIVE [None]
  - RED BLOOD CELLS URINE POSITIVE [None]
  - POLYMYALGIA RHEUMATICA [None]
  - BACTERIAL TEST POSITIVE [None]
